FAERS Safety Report 4816388-3 (Version None)
Quarter: 2005Q4

REPORT INFORMATION
  Report Type: 
  Country: None (occurrence: None)
  Receive Date: 20051031
  Receipt Date: 20051012
  Transmission Date: 20060501
  Serious: Yes (Death)
  Sender: FDA-Public Use
  Company Number: US-MERCK-0510USA09065

PATIENT
  Age: 64 Year

DRUGS (3)
  1. TIAMATE [Suspect]
     Route: 048
  2. CARBAMAZEPINE [Concomitant]
     Route: 065
  3. DOXEPIN HYDROCHLORIDE [Concomitant]
     Route: 065

REACTIONS (1)
  - OVERDOSE [None]
